FAERS Safety Report 24443163 (Version 1)
Quarter: 2024Q4

REPORT INFORMATION
  Report Type: Spontaneous
  Country: DE (occurrence: DE)
  Receive Date: 20241016
  Receipt Date: 20241016
  Transmission Date: 20250115
  Serious: Yes (Hospitalization)
  Sender: MICRO LABS
  Company Number: None

PATIENT
  Sex: Female

DRUGS (1)
  1. AMOXICILLIN TRIHYDRATE [Suspect]
     Active Substance: AMOXICILLIN
     Indication: Product used for unknown indication

REACTIONS (3)
  - Body temperature increased [Unknown]
  - Pruritus [Unknown]
  - Hypersensitivity [Unknown]
